FAERS Safety Report 5694396-0 (Version None)
Quarter: 2008Q2

REPORT INFORMATION
  Report Type: 
  Country: None (occurrence: None)
  Receive Date: 20080402
  Receipt Date: 20080320
  Transmission Date: 20081010
  Serious: Yes (Hospitalization, Other)
  Sender: FDA-Public Use
  Company Number: 2008SP005652

PATIENT
  Age: 20 Year
  Sex: Female

DRUGS (1)
  1. LORATADINE [Suspect]
     Indication: DRUG USE FOR UNKNOWN INDICATION
     Dosage: ONCE

REACTIONS (2)
  - GAZE PALSY [None]
  - OCULOGYRIC CRISIS [None]
